FAERS Safety Report 8246843-8 (Version None)
Quarter: 2012Q1

REPORT INFORMATION
  Report Type: 
  Country: None (occurrence: None)
  Receive Date: 20120330
  Receipt Date: 20120326
  Transmission Date: 20120608
  Serious: No
  Sender: FDA-Public Use
  Company Number: US-PFIZER INC-2012077821

PATIENT
  Sex: Female

DRUGS (1)
  1. LATANOPROST [Suspect]
     Indication: GLAUCOMA
     Dosage: UNK, ONE DROP IN EACH EYE ONCE A DAY
     Route: 047
     Dates: start: 20110101, end: 20120326

REACTIONS (1)
  - EYE IRRITATION [None]
